FAERS Safety Report 7252666-9 (Version None)
Quarter: 2011Q1

REPORT INFORMATION
  Report Type: 
  Country: None (occurrence: None)
  Receive Date: 20110129
  Receipt Date: 20100419
  Transmission Date: 20110831
  Serious: No
  Sender: FDA-Public Use
  Company Number: US-ABBOTT-10P-163-0639345-00

PATIENT
  Sex: Female
  Weight: 65.376 kg

DRUGS (1)
  1. HUMIRA [Suspect]
     Indication: RHEUMATOID ARTHRITIS
     Dates: start: 20060401

REACTIONS (6)
  - RHINITIS [None]
  - COUGH [None]
  - ASTHMA [None]
  - SNEEZING [None]
  - RESPIRATORY TRACT CONGESTION [None]
  - WHEEZING [None]
